FAERS Safety Report 13133321 (Version 1)
Quarter: 2017Q1

REPORT INFORMATION
  Report Type: Spontaneous
  Country: US (occurrence: US)
  Receive Date: 20170119
  Receipt Date: 20170119
  Transmission Date: 20170428
  Serious: Yes (Death, Hospitalization)
  Sender: FDA-Public Use
  Company Number: None

PATIENT
  Age: 60 Year
  Sex: Male
  Weight: 70.2 kg

DRUGS (2)
  1. BRILINTA [Suspect]
     Active Substance: TICAGRELOR
  2. ASPIRIN. [Suspect]
     Active Substance: ASPIRIN

REACTIONS (3)
  - Intraventricular haemorrhage [None]
  - Cerebral haemorrhage [None]
  - Brain herniation [None]

NARRATIVE: CASE EVENT DATE: 20170102
